FAERS Safety Report 5091285-X (Version None)
Quarter: 2006Q3

REPORT INFORMATION
  Report Type: 
  Country: None (occurrence: None)
  Receive Date: 20060829
  Receipt Date: 20060707
  Transmission Date: 20061208
  Serious: Yes (Other)
  Sender: FDA-Public Use
  Company Number: FR-AVENTIS-200612438FR

PATIENT
  Age: 83 Year
  Sex: Male
  Weight: 82 kg

DRUGS (7)
  1. ARAVA [Suspect]
     Indication: RHEUMATOID ARTHRITIS
     Route: 048
     Dates: start: 20050125
  2. CORTANCYL [Concomitant]
     Indication: RHEUMATOID ARTHRITIS
     Route: 048
  3. ALLOPURINOL [Concomitant]
     Indication: DRUG USE FOR UNKNOWN INDICATION
     Route: 048
  4. HERBAL PREPARATION [Concomitant]
     Indication: DRUG USE FOR UNKNOWN INDICATION
  5. ATACAND [Concomitant]
     Indication: HYPERTENSION
     Route: 048
  6. CALCIUM WITH VITAMIN D [Concomitant]
     Indication: RHEUMATOID ARTHRITIS
     Route: 048
  7. DI-ANTALVIC [Concomitant]
     Indication: BACK PAIN
     Route: 048

REACTIONS (2)
  - BACK PAIN [None]
  - RENAL CELL CARCINOMA STAGE UNSPECIFIED [None]
